FAERS Safety Report 7484892-8 (Version None)
Quarter: 2011Q2

REPORT INFORMATION
  Report Type: 
  Country: None (occurrence: None)
  Receive Date: 20110517
  Receipt Date: 20110509
  Transmission Date: 20111010
  Serious: Yes (Life-Threatening, Hospitalization, Disabling, Other)
  Sender: FDA-Public Use
  Company Number: A0924929A

PATIENT
  Age: 10 Year
  Sex: Female

DRUGS (2)
  1. LAMICTAL [Suspect]
     Indication: BIPOLAR DISORDER
     Route: 048
     Dates: start: 20090101, end: 20090101
  2. NO CONCURRENT MEDICATION [Concomitant]

REACTIONS (10)
  - DEPRESSED LEVEL OF CONSCIOUSNESS [None]
  - LEARNING DISABILITY [None]
  - GENERAL PHYSICAL HEALTH DETERIORATION [None]
  - STEVENS-JOHNSON SYNDROME [None]
  - SKIN EXFOLIATION [None]
  - PYREXIA [None]
  - FATIGUE [None]
  - SLOW RESPONSE TO STIMULI [None]
  - RASH [None]
  - DISSEMINATED INTRAVASCULAR COAGULATION [None]
